FAERS Safety Report 11326786 (Version 1)
Quarter: 2015Q3

REPORT INFORMATION
  Report Type: Spontaneous
  Country: US (occurrence: None)
  Receive Date: 20150629
  Receipt Date: 20150629
  Transmission Date: 20151125
  Serious: No
  Sender: FDA-Public Use
  Company Number: A-US2014-108431

PATIENT
  Age: 21 Year
  Sex: Female

DRUGS (2)
  1. SILDENAFIL (SILDENAFIL CITRATE) [Concomitant]
     Active Substance: SILDENAFIL CITRATE
  2. OPSUMIT [Suspect]
     Active Substance: MACITENTAN
     Indication: PULMONARY ARTERIAL HYPERTENSION
     Route: 048
     Dates: start: 20141023, end: 20141027

REACTIONS (3)
  - Blood pressure fluctuation [None]
  - Fatigue [None]
  - Blood pressure increased [None]
